FAERS Safety Report 11185060 (Version 2)
Quarter: 2015Q2

REPORT INFORMATION
  Report Type: Spontaneous
  Country: US (occurrence: US)
  Receive Date: 20150612
  Receipt Date: 20150625
  Transmission Date: 20150821
  Serious: Yes (Other)
  Sender: FDA-Public Use
  Company Number: US-PFIZER INC-2015195046

PATIENT
  Age: 69 Year
  Sex: Female
  Weight: 87 kg

DRUGS (4)
  1. LIPITOR [Suspect]
     Active Substance: ATORVASTATIN CALCIUM
     Indication: BLOOD TRIGLYCERIDES INCREASED
  2. COQ 10 [Concomitant]
     Active Substance: UBIDECARENONE
     Indication: CARDIOVASCULAR EVENT PROPHYLAXIS
     Dosage: 1 DF (OFF AND ON), UNK
     Dates: start: 1994
  3. LIPITOR [Suspect]
     Active Substance: ATORVASTATIN CALCIUM
     Indication: BLOOD CHOLESTEROL ABNORMAL
     Dosage: 20 MG, DAILY
     Route: 048
     Dates: start: 200005, end: 200810
  4. CRESTOR [Concomitant]
     Active Substance: ROSUVASTATIN CALCIUM
     Indication: BLOOD CHOLESTEROL ABNORMAL
     Dosage: 10 MG, DAILY
     Dates: start: 200810, end: 2009

REACTIONS (1)
  - Type 2 diabetes mellitus [Not Recovered/Not Resolved]

NARRATIVE: CASE EVENT DATE: 20081203
